FAERS Safety Report 6939613-1 (Version None)
Quarter: 2010Q3

REPORT INFORMATION
  Report Type: 
  Country: None (occurrence: None)
  Receive Date: 20100820
  Receipt Date: 20100812
  Transmission Date: 20110219
  Serious: Yes (Life-Threatening, Hospitalization)
  Sender: FDA-Public Use
  Company Number: 2010SP044024

PATIENT
  Age: 24 Year
  Sex: Female
  Weight: 70.3075 kg

DRUGS (1)
  1. IMPLANON [Suspect]
     Indication: CONTRACEPTION
     Dosage: 68 MG; SBDE
     Route: 059
     Dates: start: 20090814

REACTIONS (5)
  - BODY TEMPERATURE INCREASED [None]
  - CHEST PAIN [None]
  - DIZZINESS [None]
  - HAEMORRHAGE [None]
  - IMPLANT SITE PAIN [None]
